FAERS Safety Report 5572505-1 (Version None)
Quarter: 2007Q4

REPORT INFORMATION
  Report Type: 
  Country: None (occurrence: None)
  Receive Date: 20071219
  Receipt Date: 20071205
  Transmission Date: 20080405
  Serious: Yes (Death, Hospitalization)
  Sender: FDA-Public Use
  Company Number: 2007US002290

PATIENT
  Age: 3 Year
  Sex: Male

DRUGS (3)
  1. PROGRAF [Suspect]
     Indication: LIVER TRANSPLANT
     Dosage: 1 MG, BID, ORAL
     Route: 048
     Dates: end: 20070909
  2. MEROPENEM (MEROPENEM) [Concomitant]
  3. VALGANCICLOVIR HCL [Concomitant]

REACTIONS (5)
  - BONE MARROW FAILURE [None]
  - CYTOMEGALOVIRUS INFECTION [None]
  - MOUTH ULCERATION [None]
  - PROTEUS INFECTION [None]
  - SEPTIC SHOCK [None]
